FAERS Safety Report 8153410-3 (Version None)
Quarter: 2012Q1

REPORT INFORMATION
  Report Type: 
  Country: None (occurrence: None)
  Receive Date: 20120221
  Receipt Date: 20120207
  Transmission Date: 20120608
  Serious: Yes (Life-Threatening, Hospitalization, Other)
  Sender: FDA-Public Use
  Company Number: JP-ROCHE-761479

PATIENT
  Age: 24 Year
  Sex: Male
  Weight: 70 kg

DRUGS (8)
  1. MYCOPHENOLATE MOFETIL (CELLCEPT) [Suspect]
     Route: 048
     Dates: start: 20110116, end: 20110124
  2. MYCOPHENOLATE MOFETIL (CELLCEPT) [Suspect]
     Route: 048
  3. HORMONES NOS [Suspect]
     Indication: PROPHYLAXIS AGAINST TRANSPLANT REJECTION
     Dosage: DRUG: ADRENAL HORMONE PREPARATIONS
     Route: 065
  4. HORMONES NOS [Suspect]
     Route: 065
  5. PROGRAF [Suspect]
     Indication: PROPHYLAXIS AGAINST TRANSPLANT REJECTION
     Dosage: DOSE FORM: UNCERTAINITY
     Route: 065
  6. PROGRAF [Suspect]
     Route: 065
  7. MYCOPHENOLATE MOFETIL (CELLCEPT) [Suspect]
     Indication: PROPHYLAXIS AGAINST TRANSPLANT REJECTION
     Route: 048
     Dates: start: 20110115, end: 20110116
  8. MYCOPHENOLATE MOFETIL (CELLCEPT) [Suspect]
     Route: 048
     Dates: start: 20110211, end: 20110216

REACTIONS (15)
  - CONVULSION [None]
  - ALTERED STATE OF CONSCIOUSNESS [None]
  - PLATELET COUNT DECREASED [None]
  - DIARRHOEA [None]
  - ASPARTATE AMINOTRANSFERASE INCREASED [None]
  - VARICELLA [None]
  - METABOLIC DISORDER [None]
  - WHITE BLOOD CELL COUNT DECREASED [None]
  - HEPATIC FAILURE [None]
  - LUNG DISORDER [None]
  - ILEUS [None]
  - DISSEMINATED INTRAVASCULAR COAGULATION [None]
  - UPPER GASTROINTESTINAL HAEMORRHAGE [None]
  - RESPIRATORY TRACT HAEMORRHAGE [None]
  - HICCUPS [None]
